FAERS Safety Report 12496553 (Version 1)
Quarter: 2016Q2

REPORT INFORMATION
  Report Type: Report from Study
  Country: US (occurrence: US)
  Receive Date: 20160624
  Receipt Date: 20160624
  Transmission Date: 20160815
  Serious: No
  Sender: FDA-Public Use
  Company Number: GXBR2016US001882

PATIENT
  Age: 65 Year
  Sex: Female

DRUGS (1)
  1. GLATOPA [Suspect]
     Active Substance: GLATIRAMER ACETATE
     Indication: PRODUCT USED FOR UNKNOWN INDICATION
     Dosage: 20 MG/ML, QD
     Route: 065

REACTIONS (5)
  - Joint hyperextension [Unknown]
  - Fall [Unknown]
  - Swelling [Unknown]
  - Pain in extremity [Unknown]
  - Ligament sprain [Unknown]

NARRATIVE: CASE EVENT DATE: 20160505
